FAERS Safety Report 11219970 (Version 5)
Quarter: 2017Q1

REPORT INFORMATION
  Report Type: Report from Study
  Country: US (occurrence: US)
  Receive Date: 20150625
  Receipt Date: 20170104
  Transmission Date: 20170428
  Serious: Yes (Hospitalization)
  Sender: FDA-Public Use
  Company Number: US-ACTELION-A-NJ2015-120068

PATIENT
  Age: 64 Year
  Sex: Male

DRUGS (2)
  1. DILTIAZEM. [Concomitant]
     Active Substance: DILTIAZEM
  2. VENTAVIS [Suspect]
     Active Substance: ILOPROST
     Indication: PULMONARY ARTERIAL HYPERTENSION
     Dosage: 5 MCG, 6-9 TIMES DAILY
     Route: 055
     Dates: start: 20140429

REACTIONS (5)
  - Cardiac disorder [Unknown]
  - Myocardial infarction [Unknown]
  - Chest pain [Unknown]
  - Coronary arterial stent insertion [Unknown]
  - Gastric disorder [Unknown]
